FAERS Safety Report 15330686 (Version 2)
Quarter: 2018Q4

REPORT INFORMATION
  Report Type: Spontaneous
  Country: GB (occurrence: GB)
  Receive Date: 20180829
  Receipt Date: 20181029
  Transmission Date: 20190204
  Serious: Yes (Other)
  Sender: FDA-Public Use
  Company Number: PHHY2018GB083001

PATIENT
  Age: 61 Year
  Sex: Female
  Weight: 50.34 kg

DRUGS (5)
  1. METRONIDAZOLE. [Suspect]
     Active Substance: METRONIDAZOLE
     Dosage: TWO 5ML SPOONFULS
     Route: 048
     Dates: start: 20180713, end: 20180713
  2. CEFALEXIN [Suspect]
     Active Substance: CEPHALEXIN
     Indication: DIVERTICULITIS
     Dosage: 1500 MG, QD
     Route: 048
     Dates: start: 20180713, end: 20180713
  3. METRONIDAZOLE. [Suspect]
     Active Substance: METRONIDAZOLE
     Indication: DIVERTICULITIS
     Dosage: 600 MG, QD
     Route: 048
     Dates: start: 20180712, end: 20180713
  4. METRONIDAZOLE. [Suspect]
     Active Substance: METRONIDAZOLE
     Dosage: REPLACED WITH LIQUID
     Route: 048
     Dates: start: 20180712, end: 20180713
  5. METRONIDAZOLE. [Suspect]
     Active Substance: METRONIDAZOLE
     Dosage: 30 ML, QD
     Route: 048
     Dates: start: 20180713, end: 20180713

REACTIONS (14)
  - Dyspepsia [Recovered/Resolved]
  - Speech disorder [Recovered/Resolved]
  - Hyperhidrosis [Recovered/Resolved]
  - Dyspnoea [Recovered/Resolved]
  - Nausea [Recovered/Resolved]
  - Oral discomfort [Recovered/Resolved]
  - Choking sensation [Recovered/Resolved]
  - Cough [Recovered/Resolved]
  - Wrong technique in product usage process [Recovered/Resolved]
  - Oesophageal pain [Recovered/Resolved]
  - Palpitations [Recovered/Resolved]
  - Dysgeusia [Recovered/Resolved]
  - Product use complaint [Recovered/Resolved]
  - Rash [Recovered/Resolved]

NARRATIVE: CASE EVENT DATE: 20180713
